FAERS Safety Report 10911521 (Version 4)
Quarter: 2015Q2

REPORT INFORMATION
  Report Type: Report from Study
  Country: CA (occurrence: CA)
  Receive Date: 20150313
  Receipt Date: 20150521
  Transmission Date: 20150821
  Serious: Yes (Disabling, Other)
  Sender: FDA-Public Use
  Company Number: CA-ASTRAZENECA-2015SE14713

PATIENT
  Age: 834 Month
  Sex: Female

DRUGS (1)
  1. FASLODEX [Suspect]
     Active Substance: FULVESTRANT
     Indication: BREAST CANCER
     Route: 030
     Dates: start: 20150125, end: 2015

REACTIONS (11)
  - Injection site pain [Unknown]
  - Upper limb fracture [Not Recovered/Not Resolved]
  - Insomnia [Unknown]
  - Pruritus [Recovered/Resolved]
  - Blood glucose increased [Unknown]
  - Lip swelling [Unknown]
  - Fall [Unknown]
  - Hot flush [Unknown]
  - Tumour marker increased [Unknown]
  - Headache [Not Recovered/Not Resolved]
  - Somnolence [Unknown]

NARRATIVE: CASE EVENT DATE: 201501
